FAERS Safety Report 8100165-4 (Version None)
Quarter: 2012Q1

REPORT INFORMATION
  Report Type: 
  Country: None (occurrence: None)
  Receive Date: 20120129
  Receipt Date: 20111130
  Transmission Date: 20120608
  Serious: No
  Sender: FDA-Public Use
  Company Number: US-ABBOTT-11P-163-0879405-00

PATIENT
  Sex: Female
  Weight: 112.14 kg

DRUGS (5)
  1. DILAUDID [Concomitant]
     Indication: PAIN
     Dosage: NOT REPORTED
  2. PAXIL [Concomitant]
     Indication: DEPRESSION
     Dosage: NOT REPORTED
  3. HUMIRA [Suspect]
     Indication: CROHN'S DISEASE
     Route: 058
     Dates: start: 20070101
  4. KLONOPIN [Concomitant]
     Indication: ANXIETY
     Dosage: NOT REPORTED
  5. MERCAPTOPURINE [Concomitant]
     Indication: CROHN'S DISEASE
     Dosage: NOT REPORTED

REACTIONS (3)
  - GASTROENTERITIS VIRAL [None]
  - DIARRHOEA [None]
  - PYREXIA [None]
